FAERS Safety Report 10067324 (Version 2)
Quarter: 2014Q2

REPORT INFORMATION
  Report Type: Spontaneous
  Country: US (occurrence: US)
  Receive Date: 20140409
  Receipt Date: 20140409
  Transmission Date: 20141212
  Serious: Yes (Hospitalization)
  Sender: FDA-Public Use
  Company Number: US-DRREDDYS-USA/USA/13/0034588

PATIENT
  Age: 19 Year
  Sex: Female
  Weight: 86.26 kg

DRUGS (2)
  1. AMOXICILLIN W/CLAVULANATE POTASSIUM 875 MG TABLETS [Suspect]
     Indication: EAR INFECTION
     Route: 048
     Dates: start: 20130715
  2. BUDESONIDE [Concomitant]
     Indication: PRODUCT USED FOR UNKNOWN INDICATION
     Route: 065

REACTIONS (1)
  - Stevens-Johnson syndrome [Recovering/Resolving]
